FAERS Safety Report 9405180 (Version 1)
Quarter: 2013Q3

REPORT INFORMATION
  Report Type: Spontaneous
  Country: US (occurrence: US)
  Receive Date: 20130717
  Receipt Date: 20130717
  Transmission Date: 20140515
  Serious: No
  Sender: FDA-Public Use
  Company Number: US-009507513-1307USA002415

PATIENT
  Sex: Female

DRUGS (7)
  1. NASONEX [Suspect]
     Indication: PROPHYLAXIS
     Dosage: 50 MICROGRAM, EACH NOSTRIL, QD
     Route: 045
     Dates: start: 201306
  2. FLONASE [Concomitant]
  3. CRESTOR [Concomitant]
  4. UNITHROID [Concomitant]
  5. ORACEA [Concomitant]
  6. KETOCONAZOLE [Concomitant]
  7. METROGEL (METRONIDAZOLE) [Concomitant]

REACTIONS (3)
  - Pruritus [Not Recovered/Not Resolved]
  - Off label use [Unknown]
  - Adverse drug reaction [Unknown]
